FAERS Safety Report 20051455 (Version 1)
Quarter: 2021Q4

REPORT INFORMATION
  Report Type: Other
  Country: KR (occurrence: None)
  Receive Date: 20211110
  Receipt Date: 20211110
  Transmission Date: 20220304
  Serious: Yes (Other)
  Sender: FDA-Public Use
  Company Number: KR-ROCHE-2950954

PATIENT
  Age: 57 Year
  Sex: Male
  Weight: 63 kg

DRUGS (6)
  1. ATEZOLIZUMAB [Suspect]
     Active Substance: ATEZOLIZUMAB
     Indication: Hepatocellular carcinoma
     Dosage: NEXT DOSE: 25/OCT/2021 (1200 MG)
     Route: 042
     Dates: start: 20211001
  2. BEVACIZUMAB [Suspect]
     Active Substance: BEVACIZUMAB
     Indication: Hepatocellular carcinoma
     Route: 042
  3. NORZYME [Concomitant]
     Indication: Gastrooesophageal reflux disease
     Dates: start: 20210901
  4. NEXIUM [Concomitant]
     Active Substance: ESOMEPRAZOLE MAGNESIUM
     Indication: Gastrooesophageal reflux disease
     Dates: start: 20210901
  5. BARACLUDE [Concomitant]
     Active Substance: ENTECAVIR
     Indication: Hepatitis B
     Dates: start: 2015
  6. URSODIOL [Concomitant]
     Active Substance: URSODIOL

REACTIONS (2)
  - Ascites [Recovering/Resolving]
  - Blood bilirubin increased [Recovering/Resolving]

NARRATIVE: CASE EVENT DATE: 20211023
